FAERS Safety Report 13136162 (Version 1)
Quarter: 2017Q1

REPORT INFORMATION
  Report Type: Spontaneous
  Country: IE (occurrence: IE)
  Receive Date: 20170121
  Receipt Date: 20170121
  Transmission Date: 20170428
  Serious: Yes (Hospitalization, Other)
  Sender: FDA-Public Use
  Company Number: IE-ACCORD-047553

PATIENT
  Age: 2 Year
  Sex: Male

DRUGS (1)
  1. METHOTREXATE. [Suspect]
     Active Substance: METHOTREXATE
     Indication: PRODUCT USED FOR UNKNOWN INDICATION
     Dosage: ACCIDENTAL INGESTION AND OVERDOSE
     Route: 048

REACTIONS (6)
  - Accidental exposure to product [Recovered/Resolved]
  - Blood alkaline phosphatase increased [Recovered/Resolved]
  - Vomiting [Recovered/Resolved]
  - White blood cell count increased [Recovered/Resolved]
  - Psychomotor hyperactivity [Recovered/Resolved]
  - Accidental overdose [Recovered/Resolved]
